FAERS Safety Report 6683052-8 (Version None)
Quarter: 2010Q2

REPORT INFORMATION
  Report Type: 
  Country: None (occurrence: None)
  Receive Date: 20100415
  Receipt Date: 20100405
  Transmission Date: 20101027
  Serious: Yes (Other)
  Sender: FDA-Public Use
  Company Number: PHEH2009US18081

PATIENT
  Sex: Male

DRUGS (4)
  1. RITALIN [Suspect]
     Indication: ATTENTION DEFICIT/HYPERACTIVITY DISORDER
     Dosage: UNK
     Route: 048
     Dates: start: 20040815
  2. RITALIN [Suspect]
     Dosage: 10 MG, BID
     Route: 048
     Dates: end: 20050504
  3. ESCITALOPRAM [Concomitant]
     Indication: DEPRESSION
     Dosage: 10 MG, UNK
     Route: 048
     Dates: start: 20040301, end: 20050101
  4. RISPERIDONE [Concomitant]
     Dosage: 0.5 MG, UNK
     Route: 048
     Dates: start: 20050401

REACTIONS (3)
  - AORTIC VALVE DISEASE [None]
  - AORTIC VALVE REPAIR [None]
  - CARDIAC DISORDER [None]
